FAERS Safety Report 19314481 (Version 3)
Quarter: 2021Q2

REPORT INFORMATION
  Report Type: Spontaneous
  Country: US (occurrence: US)
  Receive Date: 20210527
  Receipt Date: 20210624
  Transmission Date: 20210717
  Serious: No
  Sender: FDA-Public Use
  Company Number: US-AMGEN-USASP2021078937

PATIENT
  Age: 82 Year
  Sex: Female

DRUGS (1)
  1. REPATHA [Suspect]
     Active Substance: EVOLOCUMAB
     Indication: HYPERCHOLESTEROLAEMIA
     Dosage: 140 MILLIGRAM, Q2WK
     Route: 065

REACTIONS (6)
  - Muscle spasms [Unknown]
  - Vomiting [Unknown]
  - Drug hypersensitivity [Unknown]
  - Arthralgia [Unknown]
  - Symptom recurrence [Unknown]
  - Nausea [Unknown]

NARRATIVE: CASE EVENT DATE: 20210517
